FAERS Safety Report 4971162-2 (Version None)
Quarter: 2006Q1

REPORT INFORMATION
  Report Type: 
  Country: None (occurrence: None)
  Receive Date: 20060222
  Receipt Date: 20050217
  Transmission Date: 20060701
  Serious: Yes (Other)
  Sender: FDA-Public Use
  Company Number: HQWYE405018FEB05

PATIENT
  Age: 84 Year
  Sex: Male
  Weight: 88.53 kg

DRUGS (1)
  1. PROTONIX [Suspect]
     Indication: GASTROINTESTINAL ULCER HAEMORRHAGE
     Dosage: ORAL
     Route: 048
     Dates: start: 20041221

REACTIONS (1)
  - JAUNDICE [None]
